FAERS Safety Report 10079797 (Version 1)
Quarter: 2014Q2

REPORT INFORMATION
  Report Type: Spontaneous
  Country: US (occurrence: US)
  Receive Date: 20140415
  Receipt Date: 20140415
  Transmission Date: 20141212
  Serious: Yes (Hospitalization)
  Sender: FDA-Public Use
  Company Number: US-JNJFOC-20140406397

PATIENT
  Age: 86 Year
  Sex: Female
  Weight: 56.7 kg

DRUGS (17)
  1. XARELTO [Suspect]
     Indication: CEREBROVASCULAR ACCIDENT PROPHYLAXIS
     Route: 048
  2. XARELTO [Suspect]
     Indication: CEREBROVASCULAR ACCIDENT PROPHYLAXIS
     Route: 048
  3. XARELTO [Suspect]
     Indication: ATRIAL FIBRILLATION
     Route: 048
  4. XARELTO [Suspect]
     Indication: ATRIAL FIBRILLATION
     Route: 048
  5. ASPIRIN [Suspect]
     Indication: CEREBROVASCULAR ACCIDENT
     Route: 048
  6. MOM [Concomitant]
     Route: 065
  7. METOPROLOL [Concomitant]
     Route: 065
  8. MVI [Concomitant]
     Route: 065
  9. SYNTHROID [Concomitant]
     Route: 065
  10. MUCINEX [Concomitant]
     Route: 065
  11. CALCIUM AND VIT D [Concomitant]
     Route: 065
  12. MIRABEGRON [Concomitant]
     Route: 065
  13. OMEPRAZOLE [Concomitant]
     Route: 065
  14. SENOKOT S [Concomitant]
     Route: 065
  15. PERCOCET [Concomitant]
     Route: 065
  16. ZINC SULFATE [Concomitant]
     Route: 065
  17. VITAMIN C [Concomitant]
     Route: 065

REACTIONS (4)
  - Gastrointestinal haemorrhage [Recovered/Resolved]
  - Dyspnoea [Recovered/Resolved]
  - Hypoxia [Recovered/Resolved]
  - International normalised ratio increased [Unknown]
